FAERS Safety Report 23489210 (Version 1)
Quarter: 2024Q1

REPORT INFORMATION
  Report Type: Report from Study
  Country: BE (occurrence: BE)
  Receive Date: 20240206
  Receipt Date: 20240206
  Transmission Date: 20240410
  Serious: Yes (Other)
  Sender: FDA-Public Use
  Company Number: BE-Vifor Pharma-VIT-2024-00664

PATIENT
  Age: 80 Year
  Sex: Male
  Weight: 95.2 kg

DRUGS (1)
  1. DIFELIKEFALIN [Suspect]
     Active Substance: DIFELIKEFALIN
     Indication: Uraemic pruritus
     Dosage: (3 IN 1 WK)
     Route: 040
     Dates: start: 20230703

REACTIONS (6)
  - Fall [Recovered/Resolved]
  - Paranasal sinus haematoma [Recovered/Resolved]
  - Foot fracture [Recovered/Resolved]
  - Cellulitis [Recovered/Resolved]
  - Pneumonia [Recovered/Resolved]
  - Conjunctivitis [Recovered/Resolved]

NARRATIVE: CASE EVENT DATE: 20231220
